FAERS Safety Report 10504491 (Version 1)
Quarter: 2014Q4

REPORT INFORMATION
  Report Type: Spontaneous
  Country: US (occurrence: None)
  Receive Date: 20141007
  Receipt Date: 20141007
  Transmission Date: 20150528
  Serious: Yes (Life-Threatening)
  Sender: FDA-Public Use
  Company Number: None

PATIENT
  Age: 71 Year
  Sex: Female
  Weight: 72.58 kg

DRUGS (2)
  1. PRAVASTATIN [Suspect]
     Active Substance: PRAVASTATIN\PRAVASTATIN SODIUM
     Indication: BLOOD CHOLESTEROL INCREASED
     Dosage: 15 TABS    1/2 TAB QD  PO @ NOC.
     Route: 048
     Dates: start: 20140913, end: 20140918
  2. VITAMIN D3 [Concomitant]
     Active Substance: CHOLECALCIFEROL

REACTIONS (19)
  - Oral mucosal eruption [None]
  - Foreign body [None]
  - Tremor [None]
  - Sensory disturbance [None]
  - Neck pain [None]
  - Photophobia [None]
  - Choking [None]
  - Peripheral coldness [None]
  - Back pain [None]
  - Fatigue [None]
  - Insomnia [None]
  - Headache [None]
  - Dysphagia [None]
  - Paraesthesia [None]
  - Dizziness [None]
  - Arthralgia [None]
  - Pharyngeal oedema [None]
  - Gait disturbance [None]
  - Chest discomfort [None]

NARRATIVE: CASE EVENT DATE: 20140913
